FAERS Safety Report 4354078-4 (Version None)
Quarter: 2004Q2

REPORT INFORMATION
  Report Type: 
  Country: None (occurrence: None)
  Receive Date: 20040503
  Receipt Date: 20040416
  Transmission Date: 20050107
  Serious: Yes (Hospitalization)
  Sender: FDA-Public Use
  Company Number: DSA_24251_2004

PATIENT
  Age: 69 Year
  Sex: Female

DRUGS (10)
  1. TEMESTA [Suspect]
     Dates: start: 20040223
  2. CISPLATIN [Suspect]
     Indication: SQUAMOUS CELL CARCINOMA
     Dosage: 105 MG ONCE IV
     Route: 042
     Dates: start: 20040223, end: 20040223
  3. FLUOROURACIL [Suspect]
     Indication: SQUAMOUS CELL CARCINOMA
     Dosage: 750 MG ONCE IV
     Route: 042
     Dates: start: 20040223, end: 20040227
  4. MORPHINE [Suspect]
     Dates: start: 20040107
  5. TAXOTERE [Suspect]
     Indication: SQUAMOUS CELL CARCINOMA
     Dosage: 110 MG ONCE IV
     Route: 042
     Dates: start: 20040223, end: 20040223
  6. SOLU-MEDROL [Concomitant]
  7. ZOPHREN [Concomitant]
  8. ZANTAC [Concomitant]
  9. BRONCHOKOD [Concomitant]
  10. OROPIVALONE [Concomitant]

REACTIONS (4)
  - DEHYDRATION [None]
  - DIARRHOEA [None]
  - MUCOSAL INFLAMMATION [None]
  - PLEURAL EFFUSION [None]
